FAERS Safety Report 11436378 (Version 1)
Quarter: 2015Q3

REPORT INFORMATION
  Report Type: Spontaneous
  Country: US (occurrence: US)
  Receive Date: 20150821
  Receipt Date: 20150821
  Transmission Date: 20151125
  Serious: No
  Sender: FDA-Public Use
  Company Number: US-ELI_LILLY_AND_COMPANY-US201405003415

PATIENT
  Sex: Male

DRUGS (3)
  1. CIALIS [Concomitant]
     Active Substance: TADALAFIL
     Indication: PROSTATOMEGALY
  2. LISINOPRIL. [Concomitant]
     Active Substance: LISINOPRIL
     Dosage: 25 MG, QD
  3. INSULIN HUMAN [Suspect]
     Active Substance: INSULIN HUMAN
     Indication: TYPE 2 DIABETES MELLITUS
     Dosage: 79 U, QD
     Route: 058

REACTIONS (6)
  - Soft tissue disorder [Unknown]
  - Tendon injury [Unknown]
  - Carpal tunnel syndrome [Unknown]
  - Blood glucose increased [Unknown]
  - Drug dose omission [Unknown]
  - Wrong technique in product usage process [Not Recovered/Not Resolved]
